FAERS Safety Report 8540380-9 (Version None)
Quarter: 2012Q3

REPORT INFORMATION
  Report Type: 
  Country: None (occurrence: None)
  Receive Date: 20120726
  Receipt Date: 20120228
  Transmission Date: 20120928
  Serious: No
  Sender: FDA-Public Use
  Company Number: US-ASTRAZENECA-2010SE59649

PATIENT
  Age: 428 Month
  Sex: Female
  Weight: 56.7 kg

DRUGS (4)
  1. SEROQUEL [Suspect]
     Indication: BIPOLAR DISORDER
     Route: 048
     Dates: start: 20010101
  2. TYLENOL PM [Concomitant]
     Indication: INSOMNIA
  3. KLONOPIN [Concomitant]
     Indication: BIPOLAR DISORDER
     Dosage: BID
  4. SEROQUEL [Suspect]
     Route: 048

REACTIONS (5)
  - INSOMNIA [None]
  - WEIGHT INCREASED [None]
  - ALLERGIC SINUSITIS [None]
  - NASAL CONGESTION [None]
  - SEDATION [None]
